FAERS Safety Report 5823194-X (Version None)
Quarter: 2008Q3

REPORT INFORMATION
  Report Type: 
  Country: None (occurrence: None)
  Receive Date: 20080725
  Receipt Date: 20080721
  Transmission Date: 20090109
  Serious: Yes (Life-Threatening, Hospitalization, Other)
  Sender: FDA-Public Use
  Company Number: PHHY2008FR15049

PATIENT
  Sex: Male

DRUGS (3)
  1. GLEEVEC [Suspect]
     Indication: ACUTE LEUKAEMIA
     Dosage: UNK
     Route: 048
     Dates: start: 20080520
  2. DOXORUBICIN [Concomitant]
     Indication: ACUTE LEUKAEMIA
     Dosage: UNK
     Route: 042
     Dates: start: 20080521
  3. VINCRISTINE [Concomitant]
     Indication: ACUTE LEUKAEMIA
     Dosage: 1.5MG/M2 DAILY
     Route: 042
     Dates: start: 20080521

REACTIONS (3)
  - ACUTE PULMONARY OEDEMA [None]
  - BRONCHOPULMONARY ASPERGILLOSIS [None]
  - FEBRILE BONE MARROW APLASIA [None]
